FAERS Safety Report 15737629 (Version 1)
Quarter: 2018Q4

REPORT INFORMATION
  Report Type: Spontaneous
  Country: BR (occurrence: BR)
  Receive Date: 20181219
  Receipt Date: 20181219
  Transmission Date: 20190205
  Serious: Yes (Hospitalization, Other)
  Sender: FDA-Public Use
  Company Number: BR-AMGEN-BRASP2018178645

PATIENT
  Age: 46 Year
  Sex: Male
  Weight: 76 kg

DRUGS (17)
  1. NEULASTIM [Suspect]
     Active Substance: PEGFILGRASTIM
     Indication: PRODUCT USED FOR UNKNOWN INDICATION
     Dosage: 6 MG, AFTER CHEMO
     Route: 058
     Dates: start: 20180803
  2. FRONTAL [Concomitant]
     Active Substance: ALPRAZOLAM
     Dosage: UNK
  3. NAUSEDRON [Concomitant]
     Active Substance: ONDANSETRON HYDROCHLORIDE
     Dosage: UNK
  4. PANTOPRAZOLE [Concomitant]
     Active Substance: PANTOPRAZOLE
     Dosage: UNK
  5. FAULDCARBO [Concomitant]
     Active Substance: CARBOPLATIN
     Indication: METASTASES TO BONE
  6. TAXOTERE [Concomitant]
     Active Substance: DOCETAXEL
     Indication: NEOPLASM PROSTATE
     Dosage: 111.96 MG, Q3WK (6 CYCLES)
     Route: 042
     Dates: start: 20180802
  7. TAXOTERE [Concomitant]
     Active Substance: DOCETAXEL
     Indication: METASTASES TO BONE
  8. LOPERAMIDE [Concomitant]
     Active Substance: LOPERAMIDE
     Dosage: UNK
  9. PREGABALIN. [Concomitant]
     Active Substance: PREGABALIN
     Dosage: UNK
  10. DEXAMETHASONE. [Concomitant]
     Active Substance: DEXAMETHASONE
     Dosage: UNK
  11. PREDNISONE. [Concomitant]
     Active Substance: PREDNISONE
     Dosage: UNK
  12. ZYTIGA [Concomitant]
     Active Substance: ABIRATERONE ACETATE
     Dosage: UNK
  13. FAULDCARBO [Concomitant]
     Active Substance: CARBOPLATIN
     Indication: NEOPLASM PROSTATE
     Dosage: 540.987 MG, Q3WK (6 CYCLES)
     Route: 042
     Dates: start: 20180802
  14. MYDETON [Concomitant]
     Dosage: UNK
  15. LAMOTRIGINE. [Concomitant]
     Active Substance: LAMOTRIGINE
     Dosage: UNK
  16. NOVALGIN (METAMIZOLE SODIUM) [Concomitant]
     Active Substance: METAMIZOLE SODIUM
     Dosage: UNK
  17. XARELTO [Concomitant]
     Active Substance: RIVAROXABAN
     Indication: DEEP VEIN THROMBOSIS
     Dosage: UNK

REACTIONS (4)
  - Diarrhoea [Recovered/Resolved]
  - Hypophosphataemia [Unknown]
  - Prostate cancer metastatic [Recovering/Resolving]
  - Mucosal inflammation [Recovered/Resolved]

NARRATIVE: CASE EVENT DATE: 201808
